FAERS Safety Report 8975629 (Version 1)
Quarter: 2012Q4

REPORT INFORMATION
  Report Type: 
  Country: US (occurrence: US)
  Receive Date: 20121219
  Receipt Date: 20121219
  Transmission Date: 20130627
  Serious: No
  Sender: FDA-Public Use
  Company Number: US-AMGEN-USASP2012058530

PATIENT
  Age: 68 Year
  Sex: Female
  Weight: 64.85 kg

DRUGS (6)
  1. PROLIA [Suspect]
     Indication: OSTEOPOROSIS POSTMENOPAUSAL
     Dosage: 60 mg, q6mo
     Route: 058
     Dates: start: 20120806
  2. ESTROGEN NOS W/PROGESTERONE/TESTOSTERONE [Concomitant]
     Indication: MENOPAUSE
     Dosage: UNK UNK, qd
     Route: 061
  3. WELLBUTRIN [Concomitant]
     Indication: DEPRESSION
     Dosage: 150 mg, qd
     Route: 048
  4. LEVOXYL [Concomitant]
     Indication: HYPOTHYROIDISM
     Dosage: 100 mg, qhs
     Route: 048
  5. NEURONTIN [Concomitant]
     Indication: TRANSIENT ISCHAEMIC ATTACK
     Dosage: 200 mg, qd
     Route: 048
  6. OMEPRAZOLE [Concomitant]
     Indication: GASTROOESOPHAGEAL REFLUX DISEASE
     Dosage: 40 mg, bid
     Route: 048

REACTIONS (2)
  - Post inflammatory pigmentation change [Unknown]
  - Skin depigmentation [Recovering/Resolving]
